FAERS Safety Report 8125038-2 (Version None)
Quarter: 2012Q1

REPORT INFORMATION
  Report Type: 
  Country: None (occurrence: None)
  Receive Date: 20120209
  Receipt Date: 20120126
  Transmission Date: 20120608
  Serious: Yes (Death, Hospitalization)
  Sender: FDA-Public Use
  Company Number: JP-ROCHE-1035562

PATIENT
  Sex: Male

DRUGS (6)
  1. AVASTIN [Suspect]
     Indication: LUNG ADENOCARCINOMA
     Route: 041
     Dates: start: 20100518, end: 20100518
  2. PACLITAXEL [Suspect]
     Route: 041
     Dates: start: 20100615, end: 20100615
  3. AVASTIN [Suspect]
     Route: 041
     Dates: start: 20100615
  4. CARBOPLATIN [Suspect]
     Indication: LUNG ADENOCARCINOMA
     Route: 041
     Dates: start: 20100518, end: 20100518
  5. CARBOPLATIN [Suspect]
     Route: 041
     Dates: start: 20100615, end: 20100615
  6. PACLITAXEL [Suspect]
     Indication: LUNG ADENOCARCINOMA
     Route: 041
     Dates: start: 20100518, end: 20100518

REACTIONS (4)
  - NEUTROPHIL COUNT DECREASED [None]
  - LUNG ADENOCARCINOMA [None]
  - WHITE BLOOD CELL COUNT DECREASED [None]
  - FEBRILE NEUTROPENIA [None]
